FAERS Safety Report 18965777 (Version 2)
Quarter: 2021Q1

REPORT INFORMATION
  Report Type: Spontaneous
  Country: KR (occurrence: KR)
  Receive Date: 20210304
  Receipt Date: 20210319
  Transmission Date: 20210420
  Serious: Yes (Death, Hospitalization)
  Sender: FDA-Public Use
  Company Number: KR-TEVA-2021-KR-1885416

PATIENT
  Age: 49 Year
  Sex: Female

DRUGS (2)
  1. KWANGDONG TAMOXIFEN TAB [Suspect]
     Active Substance: TAMOXIFEN
     Indication: ENCAPSULATING PERITONEAL SCLEROSIS
     Route: 048
  2. PREDNISOLONE. [Suspect]
     Active Substance: PREDNISOLONE
     Indication: ENCAPSULATING PERITONEAL SCLEROSIS
     Route: 048

REACTIONS (8)
  - Deep vein thrombosis [Fatal]
  - Thrombocytopenia [Unknown]
  - Portal vein thrombosis [Fatal]
  - Bacterial sepsis [Fatal]
  - Hepatic artery thrombosis [Fatal]
  - Hypophagia [Fatal]
  - Hepatic infarction [Fatal]
  - Malnutrition [Fatal]
